FAERS Safety Report 22128000 (Version 1)
Quarter: 2023Q1

REPORT INFORMATION
  Report Type: Report from Study
  Country: US (occurrence: US)
  Receive Date: 20230323
  Receipt Date: 20230323
  Transmission Date: 20230418
  Serious: Yes (Hospitalization, Other)
  Sender: FDA-Public Use
  Company Number: US-ABBVIE-4698563

PATIENT
  Age: 62 Year
  Sex: Female

DRUGS (1)
  1. HUMIRA [Suspect]
     Active Substance: ADALIMUMAB
     Indication: Ankylosing spondylitis
     Dosage: FORM STRENGTH: 40
     Route: 058

REACTIONS (3)
  - Foot deformity [Not Recovered/Not Resolved]
  - Device loosening [Unknown]
  - Procedural pain [Unknown]

NARRATIVE: CASE EVENT DATE: 20230201
